FAERS Safety Report 5460587-7 (Version None)
Quarter: 2007Q3

REPORT INFORMATION
  Report Type: 
  Country: None (occurrence: None)
  Receive Date: 20070919
  Receipt Date: 20070907
  Transmission Date: 20080115
  Serious: Yes (Hospitalization)
  Sender: FDA-Public Use
  Company Number: US-PFIZER INC-2007072483

PATIENT
  Sex: Male
  Weight: 97.1 kg

DRUGS (16)
  1. SUTENT [Suspect]
     Indication: PROSTATE CANCER
     Route: 048
  2. DOCETAXEL [Suspect]
     Indication: PROSTATE CANCER
     Route: 042
  3. ASCORBIC ACID [Concomitant]
     Indication: MEDICAL DIET
     Route: 048
  4. VITAMIN E [Concomitant]
     Indication: MEDICAL DIET
     Route: 048
  5. VITAMIN CAP [Concomitant]
     Indication: MEDICAL DIET
     Route: 048
  6. LYCOPENE [Concomitant]
     Indication: MEDICAL DIET
     Route: 048
  7. SELENIUM SULFIDE [Concomitant]
     Indication: MEDICAL DIET
     Route: 048
  8. TEA, GREEN [Concomitant]
     Indication: MEDICAL DIET
     Route: 048
  9. CITRACAL + D [Concomitant]
     Indication: MEDICAL DIET
     Route: 048
  10. VITAMIN D [Concomitant]
     Indication: MEDICAL DIET
     Route: 048
  11. LUPRON [Concomitant]
     Indication: PROSTATE CANCER
     Route: 058
  12. FISH OIL [Concomitant]
     Indication: MEDICAL DIET
     Route: 048
  13. SOY ISOFLAVONES [Concomitant]
     Indication: MEDICAL DIET
     Dosage: DAILY DOSE:200MG
     Route: 048
  14. TURMERIC [Concomitant]
     Indication: MEDICAL DIET
     Dosage: DAILY DOSE:3150MG
     Route: 048
  15. DECADRON [Concomitant]
     Indication: CHEMOTHERAPY
     Route: 048
  16. PREDNISONE [Concomitant]
     Indication: PROPHYLAXIS
     Route: 048

REACTIONS (1)
  - FEBRILE NEUTROPENIA [None]
